FAERS Safety Report 6237765-2 (Version None)
Quarter: 2009Q2

REPORT INFORMATION
  Report Type: 
  Country: None (occurrence: None)
  Receive Date: 20090618
  Receipt Date: 20090604
  Transmission Date: 20091009
  Serious: Yes (Life-Threatening)
  Sender: FDA-Public Use
  Company Number: 2009-198262-NL

PATIENT
  Age: 28 Year
  Sex: Female
  Weight: 141 kg

DRUGS (1)
  1. IMPLANON [Suspect]
     Dates: start: 20081029

REACTIONS (2)
  - CONVULSION [None]
  - DRUG INTERACTION [None]
